FAERS Safety Report 12858342 (Version 1)
Quarter: 2016Q4

REPORT INFORMATION
  Report Type: Spontaneous
  Country: AU (occurrence: AU)
  Receive Date: 20161018
  Receipt Date: 20161018
  Transmission Date: 20170207
  Serious: Yes (Disabling)
  Sender: FDA-Public Use
  Company Number: AU-PURDUE-GBR-2016-0041133

PATIENT
  Age: 80 Year
  Sex: Female

DRUGS (2)
  1. NORSPAN [Suspect]
     Active Substance: BUPRENORPHINE
     Indication: PAIN
     Dosage: 5 MCG, Q1H
     Route: 062
  2. ANTIHYPERTENSIVES [Concomitant]
     Active Substance: UNSPECIFIED INGREDIENT

REACTIONS (2)
  - Orthostatic hypotension [Recovered/Resolved]
  - Fall [Recovered/Resolved]
